FAERS Safety Report 4675471-6 (Version None)
Quarter: 2005Q2

REPORT INFORMATION
  Report Type: 
  Country: None (occurrence: None)
  Receive Date: 20050527
  Receipt Date: 20050317
  Transmission Date: 20051028
  Serious: No
  Sender: FDA-Public Use
  Company Number: US-BRISTOL-MYERS SQUIBB COMPANY-12900924

PATIENT
  Age: 56 Year
  Sex: Female
  Weight: 50 kg

DRUGS (8)
  1. ABILIFY [Suspect]
     Route: 048
     Dates: start: 20050401
  2. NITROQUICK [Concomitant]
  3. LIDOCAINE [Concomitant]
  4. VALIUM [Concomitant]
  5. TRAZODONE HCL [Concomitant]
  6. CELEXA [Concomitant]
  7. PRILOSEC [Concomitant]
  8. MUCINEX [Concomitant]

REACTIONS (2)
  - ALOPECIA [None]
  - WEIGHT INCREASED [None]
